FAERS Safety Report 9714152 (Version 1)
Quarter: 2013Q4

REPORT INFORMATION
  Report Type: Spontaneous
  Country: US (occurrence: US)
  Receive Date: 20131126
  Receipt Date: 20131126
  Transmission Date: 20140711
  Serious: No
  Sender: FDA-Public Use
  Company Number: US-GILEAD-2008-0019096

PATIENT
  Sex: Female
  Weight: 79.38 kg

DRUGS (10)
  1. LETAIRIS [Suspect]
     Indication: PULMONARY ARTERIAL HYPERTENSION
     Route: 048
     Dates: start: 20080627
  2. COUMADIN [Concomitant]
  3. LASIX [Concomitant]
  4. TOPROL XL [Concomitant]
  5. ALLOPURINOL [Concomitant]
  6. FOLIC ACID [Concomitant]
  7. POTASSIUM CL [Concomitant]
  8. CALCIUM [Concomitant]
  9. FISH OIL [Concomitant]
  10. MULTIVITAMIN [Concomitant]

REACTIONS (3)
  - Abdominal discomfort [None]
  - Abdominal discomfort [None]
  - Abdominal pain upper [None]
